FAERS Safety Report 7353831-2 (Version None)
Quarter: 2011Q1

REPORT INFORMATION
  Report Type: 
  Country: None (occurrence: None)
  Receive Date: 20110315
  Receipt Date: 20110310
  Transmission Date: 20110831
  Serious: Yes (Death)
  Sender: FDA-Public Use
  Company Number: US-ELI_LILLY_AND_COMPANY-US201101006677

PATIENT
  Sex: Female

DRUGS (15)
  1. MORPHINE SULDATE [Concomitant]
     Dosage: 30 MG, 3/D
     Route: 048
     Dates: start: 20100901
  2. NITROSTAT [Concomitant]
     Indication: CHEST PAIN
     Dosage: 0.4 MG, AS NEEDED
     Route: 048
  3. VIT D [Concomitant]
     Dosage: 1000UNITS, DAILY (1/D)
     Route: 048
  4. IRON [Concomitant]
     Dosage: UNK, DAILY (1/D)
     Route: 048
  5. FORTEO [Suspect]
     Indication: OSTEOPOROTIC FRACTURE
     Dosage: 20 UG, DAILY (1/D)
     Route: 058
     Dates: start: 20101130
  6. ASPIRIN [Concomitant]
     Dosage: 81 MG, DAILY (1/D)
     Route: 048
  7. VASOTEC [Concomitant]
     Dosage: 2.5 MG, 2/D
     Route: 048
     Dates: start: 20100310
  8. MULTI-VITAMINS [Concomitant]
     Dosage: UNK, DAILY (1/D)
     Route: 048
  9. AMILORIDE HCL AND HYDROCHLOROTHIAZIDE [Concomitant]
     Dosage: UNK, DAILY (1/D)
     Route: 048
     Dates: start: 20101115
  10. ENSURE                             /06184901/ [Concomitant]
     Dosage: UNK, DAILY (1/D)
     Route: 048
     Dates: start: 20101115
  11. PLAVIX [Concomitant]
     Dosage: UNK, DAILY (1/D)
     Route: 048
  12. CARVEDILOL [Suspect]
     Dosage: UNK, 2/D
     Route: 048
     Dates: start: 20100308
  13. GABAPENTIN [Concomitant]
     Dosage: 200 MG, 3/D
     Dates: start: 20100901
  14. CENTRUM SILVER [Concomitant]
     Dosage: UNK, DAILY (1/D)
     Route: 048
  15. AMITRIPTYLINE [Concomitant]
     Dosage: 25 MG, EACH EVENING
     Route: 048
     Dates: start: 20100129

REACTIONS (1)
  - CARDIOVASCULAR DISORDER [None]
